FAERS Safety Report 6379197-2 (Version None)
Quarter: 2009Q3

REPORT INFORMATION
  Report Type: 
  Country: None (occurrence: None)
  Receive Date: 20090923
  Receipt Date: 20090923
  Transmission Date: 20100115
  Serious: Yes (Life-Threatening)
  Sender: FDA-Public Use
  Company Number: None

PATIENT
  Age: 52 Year
  Sex: Male
  Weight: 103.4201 kg

DRUGS (2)
  1. ENBREL [Suspect]
     Indication: PSORIASIS
     Dosage: 50 MG ONCE A WEEK IM
     Route: 030
     Dates: start: 20090401, end: 20090910
  2. ENBREL [Suspect]
     Indication: RHEUMATOID ARTHRITIS
     Dosage: 50 MG ONCE A WEEK IM
     Route: 030
     Dates: start: 20090401, end: 20090910

REACTIONS (4)
  - ARTHRALGIA [None]
  - BACK PAIN [None]
  - PAIN [None]
  - SARCOIDOSIS [None]
